FAERS Safety Report 23342451 (Version 1)
Quarter: 2023Q4

REPORT INFORMATION
  Report Type: Spontaneous
  Country: ME (occurrence: ME)
  Receive Date: 20231227
  Receipt Date: 20231227
  Transmission Date: 20240110
  Serious: Yes (Hospitalization)
  Sender: FDA-Public Use
  Company Number: ME-BAYER-2023A184661

PATIENT
  Age: 23 Year
  Sex: Female
  Weight: 76 kg

DRUGS (1)
  1. YASMIN [Suspect]
     Active Substance: DROSPIRENONE\ETHINYL ESTRADIOL
     Indication: Amenorrhoea
     Dosage: 1 DF, QD
     Route: 048
     Dates: start: 2023, end: 2023

REACTIONS (4)
  - Hypercoagulation [Recovered/Resolved]
  - Pain in extremity [Recovered/Resolved]
  - Thrombosis [Recovered/Resolved]
  - Labelled drug-disease interaction medication error [None]

NARRATIVE: CASE EVENT DATE: 20230101
